FAERS Safety Report 24385796 (Version 2)
Quarter: 2024Q4

REPORT INFORMATION
  Report Type: Spontaneous
  Country: CA (occurrence: CA)
  Receive Date: 20241001
  Receipt Date: 20241007
  Transmission Date: 20250115
  Serious: Yes (Death, Other)
  Sender: ALEXION PHARMACEUTICALS
  Company Number: CA-AstraZeneca-CH-00710194A

PATIENT
  Age: 72 Year

DRUGS (10)
  1. QUETIAPINE FUMARATE [Suspect]
     Active Substance: QUETIAPINE FUMARATE
     Indication: Product used for unknown indication
     Dosage: 100 MILLIGRAM
  2. QUETIAPINE FUMARATE [Suspect]
     Active Substance: QUETIAPINE FUMARATE
     Dosage: 100 MILLIGRAM
  3. QUETIAPINE FUMARATE [Suspect]
     Active Substance: QUETIAPINE FUMARATE
     Dosage: 100 MILLIGRAM
  4. QUETIAPINE FUMARATE [Suspect]
     Active Substance: QUETIAPINE FUMARATE
     Dosage: 100 MILLIGRAM
  5. OLANZAPINE [Suspect]
     Active Substance: OLANZAPINE
     Indication: Product used for unknown indication
     Dosage: 1.25 MILLIGRAM
     Route: 050
  6. OLANZAPINE [Suspect]
     Active Substance: OLANZAPINE
     Dosage: 1.25 MILLIGRAM
  7. OLANZAPINE [Suspect]
     Active Substance: OLANZAPINE
     Dosage: 1.25 MILLIGRAM
     Route: 050
  8. OLANZAPINE [Suspect]
     Active Substance: OLANZAPINE
     Dosage: 1.25 MILLIGRAM
  9. REXULTI [Suspect]
     Active Substance: BREXPIPRAZOLE
     Indication: Dementia
     Dosage: .5 MILLIGRAM
  10. REXULTI [Suspect]
     Active Substance: BREXPIPRAZOLE
     Dosage: .25 MILLIGRAM

REACTIONS (10)
  - Product use issue [Fatal]
  - Discoloured vomit [Fatal]
  - Cardiac failure [Fatal]
  - Fall [Fatal]
  - Hallucination, auditory [Fatal]
  - Internal haemorrhage [Fatal]
  - Respiratory arrest [Fatal]
  - Tremor [Fatal]
  - Drug ineffective [Fatal]
  - Underdose [Fatal]
